FAERS Safety Report 7200471-1 (Version None)
Quarter: 2010Q4

REPORT INFORMATION
  Report Type: 
  Country: None (occurrence: None)
  Receive Date: 20101228
  Receipt Date: 20101218
  Transmission Date: 20110411
  Serious: Yes (Death)
  Sender: FDA-Public Use
  Company Number: CA-JNJCH-2010029274

PATIENT
  Sex: Male

DRUGS (1)
  1. ULTRA STRENGTH ROLAIDS SOFTCHEW VANILLA [Suspect]
     Indication: GASTROOESOPHAGEAL REFLUX DISEASE
     Dosage: TEXT:2-3 SOFTCHEWS DAILY
     Route: 048

REACTIONS (3)
  - DEATH [None]
  - OFF LABEL USE [None]
  - PRODUCT QUALITY ISSUE [None]
